FAERS Safety Report 4520369-7 (Version None)
Quarter: 2004Q4

REPORT INFORMATION
  Report Type: 
  Country: None (occurrence: None)
  Receive Date: 20041207
  Receipt Date: 20041201
  Transmission Date: 20050328
  Serious: Yes (Death, Hospitalization, Other)
  Sender: FDA-Public Use
  Company Number: PHEH2004US12910

PATIENT
  Age: 76 Year
  Sex: Female

DRUGS (2)
  1. ZELNORM [Suspect]
     Indication: IRRITABLE BOWEL SYNDROME
     Dosage: 6 MG, BID
     Route: 048
     Dates: start: 20040801
  2. STEROIDS NOS [Concomitant]

REACTIONS (5)
  - ABSCESS [None]
  - CHEST X-RAY ABNORMAL [None]
  - INTESTINAL PERFORATION [None]
  - LUNG DISORDER [None]
  - SURGERY [None]
